FAERS Safety Report 4705550-6 (Version None)
Quarter: 2005Q2

REPORT INFORMATION
  Report Type: 
  Country: None (occurrence: None)
  Receive Date: 20050629
  Receipt Date: 20050121
  Transmission Date: 20051028
  Serious: Yes (Death, Hospitalization, Other)
  Sender: FDA-Public Use
  Company Number: 200510286GDDC

PATIENT
  Age: 55 Year
  Sex: Female

DRUGS (12)
  1. ADRIAMYCIN PFS [Suspect]
     Indication: BREAST CANCER
     Dates: start: 19980729, end: 19981123
  2. CYCLOPHOSPHAMIDE [Suspect]
     Indication: BREAST CANCER
     Dates: start: 19980729, end: 19981123
  3. FLUOROURACIL [Suspect]
     Indication: BREAST CANCER
     Dates: start: 19980729, end: 19981123
  4. EFFEXOR XR [Concomitant]
  5. CELEBREX [Concomitant]
  6. FEMARA [Concomitant]
  7. CAPTOPRIL [Concomitant]
  8. FUROSEMIDE [Concomitant]
  9. ACETAMINOPHEN [Concomitant]
  10. PANTOPRAZOLE [Concomitant]
  11. GATIFLOXACIN [Concomitant]
  12. HEPARIN (LD) [Concomitant]

REACTIONS (18)
  - ATRIAL FIBRILLATION [None]
  - BLOOD CREATININE INCREASED [None]
  - CARDIAC FAILURE CONGESTIVE [None]
  - CARDIOGENIC SHOCK [None]
  - CARDIOMYOPATHY [None]
  - DISEASE RECURRENCE [None]
  - DRUG TOXICITY [None]
  - INTERNATIONAL NORMALISED RATIO INCREASED [None]
  - ISCHAEMIC HEPATITIS [None]
  - LEFT VENTRICULAR FAILURE [None]
  - LUNG CONSOLIDATION [None]
  - MITRAL VALVE INCOMPETENCE [None]
  - PLEURAL EFFUSION [None]
  - PULMONARY EMBOLISM [None]
  - PULSE ABSENT [None]
  - RESPIRATORY DISTRESS [None]
  - TRICUSPID VALVE INCOMPETENCE [None]
  - VENTRICULAR HYPOKINESIA [None]
